FAERS Safety Report 9867660 (Version 3)
Quarter: 2014Q1

REPORT INFORMATION
  Report Type: Spontaneous
  Country: KR (occurrence: KR)
  Receive Date: 20140204
  Receipt Date: 20140306
  Transmission Date: 20141002
  Serious: Yes (Hospitalization, Other)
  Sender: FDA-Public Use
  Company Number: KR-PFIZER INC-2014031328

PATIENT
  Age: 82 Year
  Sex: Female

DRUGS (2)
  1. AMIODARONE HCL [Suspect]
     Indication: ATRIAL FIBRILLATION
     Dosage: 400 MG, DAILY
     Route: 048
  2. AMIODARONE HCL [Suspect]
     Dosage: 200 MG, DAILY
     Route: 048

REACTIONS (4)
  - Pulmonary toxicity [Recovering/Resolving]
  - Hepatotoxicity [Recovering/Resolving]
  - Neurotoxicity [Unknown]
  - Parkinsonism [Unknown]
